FAERS Safety Report 7720831-X (Version None)
Quarter: 2011Q3

REPORT INFORMATION
  Report Type: 
  Country: None (occurrence: None)
  Receive Date: 20110831
  Receipt Date: 20110824
  Transmission Date: 20111222
  Serious: Yes (Hospitalization)
  Sender: FDA-Public Use
  Company Number: CH-BRISTOL-MYERS SQUIBB COMPANY-15999253

PATIENT
  Age: 48 Year
  Sex: Female

DRUGS (5)
  1. SURMONTIL [Suspect]
     Route: 048
  2. PANTOPRAZOLE [Concomitant]
     Route: 048
  3. ABILIFY [Suspect]
     Route: 048
  4. CITALOPRAM [Suspect]
     Route: 048
     Dates: end: 20110108
  5. ZYPREXA [Suspect]
     Route: 048

REACTIONS (2)
  - INTENTIONAL OVERDOSE [None]
  - ELECTROCARDIOGRAM QT INTERVAL ABNORMAL [None]
